FAERS Safety Report 10651660 (Version 1)
Quarter: 2014Q4

REPORT INFORMATION
  Report Type: Spontaneous
  Country: TR (occurrence: None)
  Receive Date: 20141211
  Receipt Date: 20141211
  Transmission Date: 20150529
  Serious: Yes (Life-Threatening, Hospitalization, Other)
  Sender: FDA-Public Use
  Company Number: 2014JUB00206

PATIENT
  Age: 28 Year
  Sex: Female

DRUGS (3)
  1. QUETIAPINE [Suspect]
     Active Substance: QUETIAPINE
     Route: 048
  2. BUPROPION [Suspect]
     Active Substance: BUPROPION
     Route: 048
  3. LEVOTHYROXINE (LEVOTHYROXINE) [Suspect]
     Active Substance: LEVOTHYROXINE
     Route: 048

REACTIONS (9)
  - Suicide attempt [None]
  - Intentional overdose [None]
  - Respiratory depression [None]
  - Generalised tonic-clonic seizure [None]
  - Agitation [None]
  - Hypotension [None]
  - Bradycardia [None]
  - Tachycardia [None]
  - Disorientation [None]
